FAERS Safety Report 7624164-1 (Version None)
Quarter: 2011Q3

REPORT INFORMATION
  Report Type: 
  Country: None (occurrence: None)
  Receive Date: 20110720
  Receipt Date: 20110720
  Transmission Date: 20111222
  Serious: Yes (Hospitalization)
  Sender: FDA-Public Use
  Company Number: None

PATIENT
  Sex: Female
  Weight: 45.86 kg

DRUGS (2)
  1. FLUOROURACIL [Suspect]
     Indication: COLON CANCER METASTATIC
     Dosage: 4260MG
     Route: 042
     Dates: start: 20110613, end: 20110615
  2. PRALATREXATE [Concomitant]
     Dosage: 168MG
     Route: 042
     Dates: start: 20110531, end: 20110531

REACTIONS (4)
  - PULMONARY THROMBOSIS [None]
  - NEOPLASM PROGRESSION [None]
  - COLON CANCER METASTATIC [None]
  - MALAISE [None]
